FAERS Safety Report 23117960 (Version 2)
Quarter: 2023Q4

REPORT INFORMATION
  Report Type: Spontaneous
  Country: US (occurrence: US)
  Receive Date: 20231027
  Receipt Date: 20231115
  Transmission Date: 20240109
  Serious: No
  Sender: FDA-Public Use
  Company Number: US-PFIZER INC-202300347542

PATIENT
  Age: 85 Year
  Sex: Male
  Weight: 76.19 kg

DRUGS (1)
  1. VYNDAMAX [Suspect]
     Active Substance: TAFAMIDIS
     Indication: Amyloidosis
     Dosage: 61 MG
     Dates: start: 20231017

REACTIONS (3)
  - Therapeutic response unexpected [Recovered/Resolved]
  - Prostatic disorder [Unknown]
  - Faeces soft [Unknown]

NARRATIVE: CASE EVENT DATE: 20231017
